FAERS Safety Report 24316537 (Version 1)
Quarter: 2024Q3

REPORT INFORMATION
  Report Type: Spontaneous
  Country: DE (occurrence: DE)
  Receive Date: 20240913
  Receipt Date: 20240913
  Transmission Date: 20241017
  Serious: Yes (Life-Threatening)
  Sender: ABBVIE
  Company Number: None

PATIENT
  Sex: Male
  Weight: 103 kg

DRUGS (2)
  1. IMBRUVICA [Suspect]
     Active Substance: IBRUTINIB
     Indication: Lymphoma
     Route: 048
     Dates: start: 202209, end: 202306
  2. IMBRUVICA [Suspect]
     Active Substance: IBRUTINIB
     Indication: Lymphoma
     Route: 048
     Dates: end: 202312

REACTIONS (7)
  - Palliative care [Recovered/Resolved]
  - Abdominal pain upper [Recovered/Resolved]
  - Gait disturbance [Recovered/Resolved]
  - Abdominal pain upper [Recovered/Resolved]
  - Bedridden [Recovered/Resolved]
  - Oral pain [Recovered/Resolved]
  - Blood blister [Recovered/Resolved]
